FAERS Safety Report 10865701 (Version 1)
Quarter: 2015Q1

REPORT INFORMATION
  Report Type: Spontaneous
  Country: US (occurrence: US)
  Receive Date: 20150224
  Receipt Date: 20150224
  Transmission Date: 20150721
  Serious: No
  Sender: FDA-Public Use
  Company Number: US-GLAXOSMITHKLINE-US2015001684

PATIENT
  Age: 49 Year
  Sex: Female

DRUGS (4)
  1. ADVAIR DISKUS [Suspect]
     Active Substance: FLUTICASONE PROPIONATE\SALMETEROL XINAFOATE
  2. ADVAIR DISKUS [Suspect]
     Active Substance: FLUTICASONE PROPIONATE\SALMETEROL XINAFOATE
     Indication: ASTHMA
     Dosage: 250/50 MCG, UNK PUFFS, EVERY 4 HOURS
     Route: 065
     Dates: start: 2013
  3. ALBUTEROL. [Concomitant]
     Active Substance: ALBUTEROL
  4. ADVAIR DISKUS [Suspect]
     Active Substance: FLUTICASONE PROPIONATE\SALMETEROL XINAFOATE
     Dosage: 500/50 MCG, 1 PUFF, BID
     Route: 065
     Dates: start: 201412

REACTIONS (4)
  - Skin discolouration [Not Recovered/Not Resolved]
  - Overdose [Unknown]
  - Dyspnoea [Unknown]
  - Wrong technique in drug usage process [Unknown]

NARRATIVE: CASE EVENT DATE: 201502
